FAERS Safety Report 7464390-8 (Version None)
Quarter: 2011Q1

REPORT INFORMATION
  Report Type: 
  Country: None (occurrence: None)
  Receive Date: 20110302
  Receipt Date: 20101108
  Transmission Date: 20110831
  Serious: Yes (Hospitalization)
  Sender: FDA-Public Use
  Company Number: 163-21880-10091735

PATIENT
  Age: 68 Year
  Sex: Male

DRUGS (8)
  1. DIGOXIN [Concomitant]
  2. OMEPRAZOLE [Concomitant]
  3. COUMADIN [Concomitant]
  4. REVLIMID [Suspect]
     Indication: MULTIPLE MYELOMA
     Dosage: 25 MG, DAILY, PO
     Route: 048
     Dates: start: 20090720, end: 20100828
  5. METOPROLOL TARTRATE [Concomitant]
  6. ZOCOR [Concomitant]
  7. ENOXAPARIN SODIUM [Concomitant]
  8. LOVENOX [Concomitant]

REACTIONS (2)
  - PULMONARY EMBOLISM [None]
  - BLOOD TEST ABNORMAL [None]
